FAERS Safety Report 23788579 (Version 4)
Quarter: 2024Q3

REPORT INFORMATION
  Report Type: Spontaneous
  Country: JP (occurrence: JP)
  Receive Date: 20240426
  Receipt Date: 20240701
  Transmission Date: 20241016
  Serious: No
  Sender: PFIZER
  Company Number: JP-PFIZER INC-202400079465

PATIENT
  Age: 11 Year
  Sex: Female

DRUGS (2)
  1. NGENLA [Suspect]
     Active Substance: SOMATROGON-GHLA
     Dosage: 18 MG, PER DOSE
     Route: 058
  2. NGENLA [Suspect]
     Active Substance: SOMATROGON-GHLA
     Dosage: 21 MG, PER DOSE
     Route: 058
     Dates: start: 20240404

REACTIONS (1)
  - Injection site pain [Unknown]
